FAERS Safety Report 17518327 (Version 2)
Quarter: 2020Q1

REPORT INFORMATION
  Report Type: Spontaneous
  Country: US (occurrence: US)
  Receive Date: 20200309
  Receipt Date: 20200320
  Transmission Date: 20200409
  Serious: Yes (Hospitalization)
  Sender: FDA-Public Use
  Company Number: US-FRESENIUS MEDICAL CARE RENAL THERAPIES GROUP-FMC-2003-000269

PATIENT
  Age: 71 Year
  Sex: Female
  Weight: 67 kg

DRUGS (12)
  1. CARVEDILOL. [Concomitant]
     Active Substance: CARVEDILOL
  2. FUROSEMIDE. [Concomitant]
     Active Substance: FUROSEMIDE
  3. DELFLEX WITH DEXTROSE 4.25% LOW MAGNESIUM LOW CALCIUM [Suspect]
     Active Substance: CALCIUM CHLORIDE\DEXTROSE\MAGNESIUM CHLORIDE\SODIUM CHLORIDE\SODIUM LACTATE
     Indication: END STAGE RENAL DISEASE
     Dosage: FILL VOLUME = 1650 ML, 6 EXCHANGES, TOTAL VOLUME = 9900 ML, NO LAST FILL, NO DAYTIME EXCHANGE, DWELL
     Route: 033
     Dates: start: 20131103
  4. CLOPIDOGREL [Concomitant]
     Active Substance: CLOPIDOGREL BISULFATE
  5. DELFLEX WITH DEXTROSE 1.5% LOW MAGNESIUM LOW CALCIUM [Suspect]
     Active Substance: CALCIUM CHLORIDE\DEXTROSE\MAGNESIUM CHLORIDE\SODIUM CHLORIDE\SODIUM LACTATE
     Indication: END STAGE RENAL DISEASE
     Dosage: FILL VOLUME = 1650 ML, 6 EXCHANGES, TOTAL VOLUME = 9900 ML, NO LAST FILL, NO DAYTIME EXCHANGE, DWELL
     Route: 033
     Dates: start: 20141103
  6. AMLODIPINE [Concomitant]
     Active Substance: AMLODIPINE BESYLATE
  7. ARANESP [Concomitant]
     Active Substance: DARBEPOETIN ALFA
  8. HUMULIN NOS [Concomitant]
     Active Substance: INSULIN HUMAN
  9. ATORVASTATIN [Concomitant]
     Active Substance: ATORVASTATIN
  10. HCTZ [Concomitant]
     Active Substance: HYDROCHLOROTHIAZIDE
  11. DELFLEX WITH DEXTROSE 2.5% LOW MAGNESIUM LOW CALCIUM [Suspect]
     Active Substance: CALCIUM CHLORIDE\DEXTROSE\MAGNESIUM CHLORIDE\SODIUM CHLORIDE\SODIUM LACTATE
     Indication: END STAGE RENAL DISEASE
     Dosage: FILL VOLUME = 1650 ML, 6 EXCHANGES, TOTAL VOLUME = 9900 ML, NO LAST FILL, NO DAYTIME EXCHANGE, DWELL
     Route: 033
     Dates: start: 20141103
  12. FERROUS SULFATE. [Concomitant]
     Active Substance: FERROUS SULFATE

REACTIONS (1)
  - Peritonitis bacterial [Recovering/Resolving]
